FAERS Safety Report 7505137-6 (Version None)
Quarter: 2011Q2

REPORT INFORMATION
  Report Type: 
  Country: None (occurrence: None)
  Receive Date: 20110526
  Receipt Date: 20110419
  Transmission Date: 20111010
  Serious: Yes (Other)
  Sender: FDA-Public Use
  Company Number: NL-AMGEN-US421841

PATIENT
  Age: 81 Year
  Sex: Female
  Weight: 45 kg

DRUGS (6)
  1. ENBREL [Suspect]
     Indication: RHEUMATOID ARTHRITIS
     Dosage: 50 MG, WEEKLY
     Route: 058
     Dates: start: 20100531
  2. NAPROXEN [Concomitant]
     Indication: PAIN
     Dosage: 500 MG, UNK
     Route: 048
     Dates: start: 20101202
  3. FOLIC ACID [Concomitant]
     Dosage: UNK
  4. NAPROXEN [Concomitant]
     Indication: RHEUMATOID ARTHRITIS
  5. METHOTREXATE [Suspect]
     Indication: RHEUMATOID ARTHRITIS
     Dosage: DOSE REDUCED
  6. PREDNISOLONE [Suspect]
     Indication: RHEUMATOID ARTHRITIS
     Dosage: 2.5 MG, 1X/DAY

REACTIONS (10)
  - FEELING ABNORMAL [None]
  - SOMNOLENCE [None]
  - COUGH [None]
  - PLEURAL EFFUSION [None]
  - DYSPNOEA [None]
  - CONDITION AGGRAVATED [None]
  - FATIGUE [None]
  - DIAPHRAGMALGIA [None]
  - MALAISE [None]
  - DEPRESSED MOOD [None]
